FAERS Safety Report 17413007 (Version 2)
Quarter: 2020Q1

REPORT INFORMATION
  Report Type: Spontaneous
  Country: US (occurrence: US)
  Receive Date: 20200213
  Receipt Date: 20200312
  Transmission Date: 20200409
  Serious: Yes (Other)
  Sender: FDA-Public Use
  Company Number: US-ALIMERA SCIENCES INC.-US-IL-2020-004571

PATIENT
  Age: 53 Year

DRUGS (1)
  1. ILUVIEN [Suspect]
     Active Substance: FLUOCINOLONE ACETONIDE
     Indication: CYSTOID MACULAR OEDEMA
     Dosage: 0.25 ?G, QD - LEFT EYE
     Route: 031
     Dates: start: 20180503

REACTIONS (4)
  - Macular fibrosis [Unknown]
  - Glaucoma [Unknown]
  - Glaucoma drainage device placement [Recovered/Resolved]
  - Off label use [Unknown]

NARRATIVE: CASE EVENT DATE: 20180503
